FAERS Safety Report 20838521 (Version 1)
Quarter: 2022Q2

REPORT INFORMATION
  Report Type: Spontaneous
  Country: CO (occurrence: CO)
  Receive Date: 20220517
  Receipt Date: 20220517
  Transmission Date: 20220720
  Serious: Yes (Other)
  Sender: FDA-Public Use
  Company Number: CO-PFIZER INC-202200701650

PATIENT
  Age: 69 Year
  Sex: Female

DRUGS (1)
  1. XELJANZ XR [Suspect]
     Active Substance: TOFACITINIB CITRATE
     Indication: Rheumatoid arthritis
     Dosage: 11 MG, 1X/DAY
     Route: 048
     Dates: start: 2014

REACTIONS (8)
  - Anxiety [Recovered/Resolved]
  - Depression [Recovered/Resolved]
  - Thrombophlebitis [Recovered/Resolved]
  - Product administration error [Unknown]
  - Malnutrition [Recovered/Resolved]
  - Weight decreased [Recovered/Resolved]
  - Cardiac disorder [Unknown]
  - Bone pain [Unknown]

NARRATIVE: CASE EVENT DATE: 20200101
